FAERS Safety Report 7323282-5 (Version None)
Quarter: 2011Q1

REPORT INFORMATION
  Report Type: 
  Country: None (occurrence: None)
  Receive Date: 20110301
  Receipt Date: 20110221
  Transmission Date: 20110831
  Serious: Yes (Other)
  Sender: FDA-Public Use
  Company Number: US-ELI_LILLY_AND_COMPANY-US201102006022

PATIENT
  Sex: Female

DRUGS (4)
  1. HUMALOG MIX 75/25 [Suspect]
     Dosage: 32 U IN MORNING; 22 U IN AFTERNOON
     Route: 065
     Dates: start: 20070101
  2. COZAAR [Concomitant]
     Dosage: 100 MG, DAILY (1/D)
  3. HUMALOG MIX 75/25 [Suspect]
     Indication: DIABETES MELLITUS
     Dosage: 15 U, AS NEEDED
     Route: 065
     Dates: start: 20010101, end: 20110101
  4. NIASPAN [Concomitant]
     Dosage: 60 MG, EACH EVENING

REACTIONS (10)
  - VISUAL ACUITY REDUCED [None]
  - NERVOUS SYSTEM DISORDER [None]
  - APHASIA [None]
  - MENTAL IMPAIRMENT [None]
  - PARAESTHESIA [None]
  - BLOOD CHOLESTEROL INCREASED [None]
  - AFFECT LABILITY [None]
  - HYPERTENSION [None]
  - CEREBROVASCULAR ACCIDENT [None]
  - CONFUSIONAL STATE [None]
